FAERS Safety Report 6457482-3 (Version None)
Quarter: 2009Q4

REPORT INFORMATION
  Report Type: 
  Country: None (occurrence: None)
  Receive Date: 20091024
  Receipt Date: 20091109
  Transmission Date: 20100525
  Serious: Yes (Hospitalization, Disabling, Other)
  Sender: FDA-Public Use
  Company Number: 2009AC000238

PATIENT
  Age: 30 Year
  Sex: Male
  Weight: 102.5129 kg

DRUGS (35)
  1. DIGOXIN [Suspect]
     Indication: ATRIAL FIBRILLATION
     Dosage: 0.25 MG;QD;PO
     Route: 048
  2. DIGOXIN [Suspect]
     Indication: ATRIAL FIBRILLATION
     Dosage: 0.125 MG; PO
     Route: 048
     Dates: start: 20010717
  3. DIGOXIN [Concomitant]
     Indication: CARDIAC FAILURE
     Dosage: 250 MCG;QD;PO
     Route: 048
     Dates: start: 20081101
  4. AMIODARONE HCL [Concomitant]
  5. BUMEX [Concomitant]
  6. COREG [Concomitant]
  7. COZAAR [Concomitant]
  8. POTASSIUM [Concomitant]
  9. ALDACTONE [Concomitant]
  10. ZAROXOLYN [Concomitant]
  11. WARFARIN SODIUM [Concomitant]
  12. BENZOYL PEROXIDE [Concomitant]
  13. SPIRONOLACTONE [Concomitant]
  14. BUMETANIDE [Concomitant]
  15. AMOXICILLIN [Concomitant]
  16. AZITHROMYCIN [Concomitant]
  17. FLOVENT [Concomitant]
  18. CEPHALEXIN [Concomitant]
  19. ACETAMINOPHEN [Concomitant]
  20. FUROSEMIDE [Concomitant]
  21. TOBRAMYCIN [Concomitant]
  22. DOXYCLINE [Concomitant]
  23. KLOR-CON [Concomitant]
  24. LEVAQUIN [Concomitant]
  25. PRO-AIR [Concomitant]
  26. HYDROCODONE [Concomitant]
  27. TRAMADOL HCL [Concomitant]
  28. CYCLOBENZAPRINE [Concomitant]
  29. KETOCONAZOLE [Concomitant]
  30. ONDANSETRON HCL [Concomitant]
  31. BETAMETHASONE [Concomitant]
  32. ALLOPURINOL [Concomitant]
  33. METHYLPREDNISOLONE [Concomitant]
  34. POTASSIUM CHLORIDE [Concomitant]
  35. CELEBREX [Concomitant]

REACTIONS (34)
  - ABDOMINAL DISTENSION [None]
  - ACNE PUSTULAR [None]
  - ANHEDONIA [None]
  - ANXIETY [None]
  - ASTHENIA [None]
  - ATRIAL FIBRILLATION [None]
  - BLOOD POTASSIUM DECREASED [None]
  - CARDIAC FAILURE CONGESTIVE [None]
  - CARDIOACTIVE DRUG LEVEL INCREASED [None]
  - CARDIOMEGALY [None]
  - CHOLELITHIASIS [None]
  - COUGH [None]
  - DECREASED APPETITE [None]
  - DYSPNOEA [None]
  - EAR PAIN [None]
  - EXERCISE TOLERANCE DECREASED [None]
  - FATIGUE [None]
  - FEELING ABNORMAL [None]
  - FLUID RETENTION [None]
  - HAEMATURIA [None]
  - IMPAIRED WORK ABILITY [None]
  - INJURY [None]
  - INTERNATIONAL NORMALISED RATIO INCREASED [None]
  - OBESITY [None]
  - OROPHARYNGEAL PAIN [None]
  - PAIN [None]
  - PAIN IN EXTREMITY [None]
  - PHARYNGITIS [None]
  - PLEURAL FIBROSIS [None]
  - RALES [None]
  - SPLENOMEGALY [None]
  - UNEVALUABLE EVENT [None]
  - VENTRICULAR FAILURE [None]
  - WEIGHT INCREASED [None]
